FAERS Safety Report 11095773 (Version 2)
Quarter: 2015Q2

REPORT INFORMATION
  Report Type: Spontaneous
  Country: US (occurrence: US)
  Receive Date: 20150507
  Receipt Date: 20150528
  Transmission Date: 20150821
  Serious: Yes (Death, Other)
  Sender: FDA-Public Use
  Company Number: US-ROCHE-1573551

PATIENT
  Age: 80 Year
  Sex: Male

DRUGS (1)
  1. ERIVEDGE [Suspect]
     Active Substance: VISMODEGIB
     Indication: NEOPLASM MALIGNANT
     Route: 048
     Dates: start: 20120312, end: 20150503

REACTIONS (4)
  - Pneumonia [Fatal]
  - Disease progression [Unknown]
  - Infection [Fatal]
  - Malaise [Fatal]

NARRATIVE: CASE EVENT DATE: 20150430
